FAERS Safety Report 11433528 (Version 1)
Quarter: 2015Q3

REPORT INFORMATION
  Report Type: Spontaneous
  Country: US (occurrence: US)
  Receive Date: 20150831
  Receipt Date: 20150831
  Transmission Date: 20151125
  Serious: No
  Sender: FDA-Public Use
  Company Number: US-TEVA-567438USA

PATIENT

DRUGS (1)
  1. OXALIPLATIN INJECTION 50MG/10 ML AND 100MG/20ML [Suspect]
     Active Substance: OXALIPLATIN
     Dosage: 100 MG/20 ML

REACTIONS (5)
  - Chest pain [Unknown]
  - Back pain [Unknown]
  - Rash [Unknown]
  - Swollen tongue [Unknown]
  - Lip swelling [Unknown]
